FAERS Safety Report 20780596 (Version 1)
Quarter: 2022Q2

REPORT INFORMATION
  Report Type: Spontaneous
  Country: US (occurrence: US)
  Receive Date: 20220504
  Receipt Date: 20220504
  Transmission Date: 20220721
  Serious: No
  Sender: FDA-Public Use
  Company Number: US-SA-SAC20220429000344

PATIENT
  Age: 74 Year
  Sex: Female

DRUGS (1)
  1. DUPIXENT [Suspect]
     Active Substance: DUPILUMAB
     Indication: Chronic rhinosinusitis with nasal polyps
     Dosage: 2 ML, QOW
     Route: 058
     Dates: start: 20220125

REACTIONS (2)
  - Injection site discomfort [Unknown]
  - Weight increased [Unknown]

NARRATIVE: CASE EVENT DATE: 20220101
